FAERS Safety Report 19092235 (Version 2)
Quarter: 2021Q2

REPORT INFORMATION
  Report Type: Spontaneous
  Country: US (occurrence: US)
  Receive Date: 20210405
  Receipt Date: 20210414
  Transmission Date: 20210717
  Serious: No
  Sender: FDA-Public Use
  Company Number: US-TRIS PHARMA, INC.-21US009357

PATIENT

DRUGS (2)
  1. HYDROCODONE + APAP [Suspect]
     Active Substance: ACETAMINOPHEN\HYDROCODONE BITARTRATE
     Indication: SCIATICA
     Dosage: 1 DOSAGE FORM, Q 4 HR
     Route: 048
     Dates: start: 202101
  2. HYDROCODONE + APAP [Suspect]
     Active Substance: ACETAMINOPHEN\HYDROCODONE BITARTRATE
     Indication: SPINAL PAIN
     Dosage: 1 DOSAGE FORM, QD
     Route: 048
     Dates: end: 202103

REACTIONS (5)
  - Urticaria [Recovered/Resolved]
  - Drug ineffective [Unknown]
  - Abdominal pain upper [Recovered/Resolved]
  - Nausea [Recovered/Resolved]
  - Product formulation issue [Unknown]

NARRATIVE: CASE EVENT DATE: 202101
